FAERS Safety Report 4724709-5 (Version None)
Quarter: 2005Q3

REPORT INFORMATION
  Report Type: 
  Country: None (occurrence: None)
  Receive Date: 20050720
  Receipt Date: 20050720
  Transmission Date: 20060218
  Serious: Yes (Hospitalization, Other)
  Sender: FDA-Public Use
  Company Number: None

PATIENT
  Age: 76 Year
  Sex: Female

DRUGS (3)
  1. PROPOXYPHENE NAPSYLATE AND ACETAMINOPHEN [Suspect]
     Indication: OSTEOPOROSIS
     Dosage: 100-650; 2 A DAY
  2. IMIPRAMINE [Suspect]
     Indication: PAIN
  3. MECLIZINE HCL [Suspect]
     Indication: PAIN

REACTIONS (6)
  - FALL [None]
  - FATIGUE [None]
  - HALLUCINATION [None]
  - ORAL INTAKE REDUCED [None]
  - PAIN [None]
  - WEIGHT DECREASED [None]
